FAERS Safety Report 19479451 (Version 1)
Quarter: 2021Q3

REPORT INFORMATION
  Report Type: Spontaneous
  Country: NO (occurrence: NO)
  Receive Date: 20210701
  Receipt Date: 20210701
  Transmission Date: 20211014
  Serious: Yes (Hospitalization, Other)
  Sender: FDA-Public Use
  Company Number: NO-AMGEN-NORSP2021090129

PATIENT
  Age: 45 Year
  Sex: Female

DRUGS (2)
  1. AIMOVIG [Suspect]
     Active Substance: ERENUMAB-AOOE
     Dosage: 140 MILLIGRAM, QMO
     Route: 065
     Dates: start: 20210309, end: 20210406
  2. AIMOVIG [Suspect]
     Active Substance: ERENUMAB-AOOE
     Indication: MIGRAINE
     Dosage: 140 MILLIGRAM  (STOPPED DATE ABOUT 3 WEEKS AGO)
     Route: 065

REACTIONS (9)
  - Abdominal mass [Unknown]
  - Gastrointestinal motility disorder [Unknown]
  - Decreased appetite [Unknown]
  - Migraine [Unknown]
  - Gastrointestinal sounds abnormal [Unknown]
  - Constipation [Recovered/Resolved]
  - Intestinal obstruction [Unknown]
  - Dyschezia [Unknown]
  - Nausea [Unknown]

NARRATIVE: CASE EVENT DATE: 20210410
